FAERS Safety Report 9020526 (Version 1)
Quarter: 2013Q1

REPORT INFORMATION
  Report Type: Spontaneous
  Country: US (occurrence: US)
  Receive Date: 20130119
  Receipt Date: 20130119
  Transmission Date: 20140127
  Serious: Yes (Hospitalization)
  Sender: FDA-Public Use
  Company Number: US-ALLERGAN-1207654US

PATIENT
  Sex: Female

DRUGS (3)
  1. BOTOX? [Suspect]
     Indication: TORTICOLLIS
     Dosage: 200 UNITS, SINGLE
     Dates: start: 201205, end: 201205
  2. BOTOX? [Suspect]
     Indication: HEADACHE
  3. DYSPORT [Concomitant]

REACTIONS (1)
  - Dysphagia [Unknown]
